FAERS Safety Report 4634404-9 (Version None)
Quarter: 2005Q2

REPORT INFORMATION
  Report Type: 
  Country: None (occurrence: None)
  Receive Date: 20050412
  Receipt Date: 20050329
  Transmission Date: 20051028
  Serious: Yes (Hospitalization, Other)
  Sender: FDA-Public Use
  Company Number: 2003113752

PATIENT
  Age: 52 Year
  Sex: Female

DRUGS (6)
  1. LIPITOR [Suspect]
     Indication: BLOOD CHOLESTEROL INCREASED
     Dates: start: 20011001, end: 20020201
  2. FENOFIBRATE [Suspect]
     Indication: HYPERLIPIDAEMIA
     Dosage: 160 MG (160 MG, 1 IN 1 D)
     Dates: start: 20040401, end: 20040727
  3. RIZATRIPTAN BENZOATE (RIZATRIPTAN BENZOATE) [Concomitant]
  4. BISELECT (HYDROCHLOROTHIAZIDE, BISOPROLOL FUMARATE) [Concomitant]
  5. LORATADINE [Concomitant]
  6. ASPIRIN [Concomitant]

REACTIONS (52)
  - ANGIOPATHY [None]
  - ANXIETY [None]
  - ARTHRALGIA [None]
  - BACK PAIN [None]
  - BLINDNESS [None]
  - BLOOD CHOLESTEROL INCREASED [None]
  - CHEST PAIN [None]
  - ECCHYMOSIS [None]
  - ECONOMIC PROBLEM [None]
  - ELECTROCARDIOGRAM T WAVE ABNORMAL [None]
  - EMOTIONAL DISTRESS [None]
  - EYE IRRITATION [None]
  - EYE PAIN [None]
  - EYE PRURITUS [None]
  - EYE SWELLING [None]
  - FATIGUE [None]
  - GAIT DISTURBANCE [None]
  - HYPERSENSITIVITY [None]
  - HYPERTENSION [None]
  - IMMUNE SYSTEM DISORDER [None]
  - INJURY [None]
  - INSOMNIA [None]
  - LIMB INJURY [None]
  - LOW DENSITY LIPOPROTEIN INCREASED [None]
  - MARITAL PROBLEM [None]
  - METRORRHAGIA [None]
  - MUSCLE STRAIN [None]
  - MUSCULOSKELETAL STIFFNESS [None]
  - MYALGIA [None]
  - MYOCARDIAL INFARCTION [None]
  - NEUTROPHIL COUNT INCREASED [None]
  - OPTIC ATROPHY [None]
  - OPTIC ISCHAEMIC NEUROPATHY [None]
  - OPTIC NERVE INFARCTION [None]
  - OPTIC NERVE INJURY [None]
  - PAIN [None]
  - PAIN IN EXTREMITY [None]
  - PAPILLOEDEMA [None]
  - POST PROCEDURAL COMPLICATION [None]
  - PRURITUS [None]
  - PYREXIA [None]
  - RETINAL VASCULAR THROMBOSIS [None]
  - SEASONAL ALLERGY [None]
  - SINUS BRADYCARDIA [None]
  - SPLINTER HAEMORRHAGES [None]
  - TENDON INJURY [None]
  - THERAPY NON-RESPONDER [None]
  - VASCULITIS [None]
  - VENTRICULAR TACHYCARDIA [None]
  - VISION BLURRED [None]
  - VISUAL DISTURBANCE [None]
  - VISUAL FIELD DEFECT [None]
